FAERS Safety Report 5399426-1 (Version None)
Quarter: 2007Q3

REPORT INFORMATION
  Report Type: 
  Country: None (occurrence: None)
  Receive Date: 20070727
  Receipt Date: 20070501
  Transmission Date: 20080115
  Serious: Yes (Other)
  Sender: FDA-Public Use
  Company Number: US-JNJFOC-20060803648

PATIENT
  Sex: Female
  Weight: 79.38 kg

DRUGS (8)
  1. RISPERDAL [Suspect]
  2. RISPERDAL [Suspect]
  3. RISPERDAL [Suspect]
     Indication: BIPOLAR DISORDER
  4. SEROQUEL [Suspect]
  5. SEROQUEL [Suspect]
  6. SEROQUEL [Suspect]
     Indication: BIPOLAR DISORDER
  7. ANAFRANIL [Concomitant]
  8. XANAX [Concomitant]

REACTIONS (4)
  - DIABETES MELLITUS [None]
  - HEPATIC ENZYME INCREASED [None]
  - HYPERCHOLESTEROLAEMIA [None]
  - WEIGHT INCREASED [None]
